FAERS Safety Report 9822375 (Version 2)
Quarter: 2014Q1

REPORT INFORMATION
  Report Type: Spontaneous
  Country: CH (occurrence: None)
  Receive Date: 20140115
  Receipt Date: 20140306
  Transmission Date: 20141002
  Serious: Yes (Life-Threatening)
  Sender: FDA-Public Use
  Company Number: 20130757

PATIENT
  Age: 66 Year
  Sex: Male

DRUGS (1)
  1. FERINJECT [Suspect]
     Indication: IRON DEFICIENCY ANAEMIA
     Dates: start: 20131107, end: 20131107

REACTIONS (3)
  - Cardio-respiratory arrest [None]
  - Bronchospasm [None]
  - Anaphylactoid reaction [None]
